FAERS Safety Report 10470574 (Version 1)
Quarter: 2014Q3

REPORT INFORMATION
  Report Type: Spontaneous
  Country: US (occurrence: None)
  Receive Date: 20140908
  Receipt Date: 20140908
  Transmission Date: 20150326
  Serious: Yes (Hospitalization)
  Sender: FDA-Public Use
  Company Number: FK201402393

PATIENT
  Age: 61 Year
  Sex: Male
  Weight: 94.3 kg

DRUGS (10)
  1. GABAPENTIN. [Concomitant]
     Active Substance: GABAPENTIN
  2. CARDURA [Concomitant]
     Active Substance: DOXAZOSIN MESYLATE
  3. PRAVACHOL (PRAVASTATIN SODIUM) [Concomitant]
  4. CISPLATIN INJECTION (CISPLATIN) (CISPLATIN) [Suspect]
     Active Substance: CISPLATIN
     Indication: NON-HODGKIN^S LYMPHOMA
     Route: 042
     Dates: start: 20120113, end: 20120113
  5. LACTULOSE. [Concomitant]
     Active Substance: LACTULOSE
  6. MORPHINE SULFATE. [Concomitant]
     Active Substance: MORPHINE SULFATE
  7. PRILOSEC (OMEPRAZOLE) [Concomitant]
     Active Substance: OMEPRAZOLE MAGNESIUM
  8. MIRALAX (MACROGOL) [Concomitant]
  9. VESICARE [Concomitant]
     Active Substance: SOLIFENACIN SUCCINATE
  10. GEMCITABINE HYDROCHLORIDE. [Suspect]
     Active Substance: GEMCITABINE HYDROCHLORIDE
     Indication: NON-HODGKIN^S LYMPHOMA
     Route: 042
     Dates: start: 20120113, end: 20120113

REACTIONS (1)
  - Febrile neutropenia [None]

NARRATIVE: CASE EVENT DATE: 20120127
